FAERS Safety Report 9228686 (Version 1)
Quarter: 2013Q2

REPORT INFORMATION
  Report Type: Spontaneous
  Country: US (occurrence: US)
  Receive Date: 20130412
  Receipt Date: 20130418
  Transmission Date: 20140414
  Serious: Yes (Death, Hospitalization)
  Sender: FDA-Public Use
  Company Number: US-LUNDBECK-DKLU1090081

PATIENT
  Sex: Female
  Weight: 8.9 kg

DRUGS (13)
  1. SABRIL (FOR ORAL SOLUTION) [Suspect]
     Indication: EPILEPSY
     Route: 048
     Dates: start: 20130107
  2. SABRIL (FOR ORAL SOLUTION) [Suspect]
     Indication: INFANTILE SPASMS
     Route: 048
     Dates: start: 20130107
  3. SABRIL (FOR ORAL SOLUTION) [Suspect]
     Route: 048
  4. SABRIL (FOR ORAL SOLUTION) [Suspect]
     Route: 048
  5. SABRIL (FOR ORAL SOLUTION) [Suspect]
     Route: 048
  6. SABRIL (FOR ORAL SOLUTION) [Suspect]
     Route: 048
  7. SABRIL (FOR ORAL SOLUTION) [Suspect]
  8. SABRIL (FOR ORAL SOLUTION) [Suspect]
  9. LEVETIRACETAM [Concomitant]
     Indication: CONVULSION
     Dates: start: 201204
  10. LEVETIRACETAM [Concomitant]
     Dates: start: 201204
  11. CLONAZEPAM [Concomitant]
     Indication: CONVULSION
     Dates: start: 201301
  12. CLONAZEPAM [Concomitant]
     Dates: start: 201301
  13. TOPIRAMATE [Concomitant]
     Indication: CONVULSION
     Dates: start: 201212

REACTIONS (4)
  - Pulmonary haemorrhage [Fatal]
  - Respiratory failure [Fatal]
  - Pneumonia [Fatal]
  - Convulsion [Unknown]
